FAERS Safety Report 20196623 (Version 1)
Quarter: 2021Q4

REPORT INFORMATION
  Report Type: Other
  Country: US (occurrence: None)
  Receive Date: 20211216
  Receipt Date: 20211216
  Transmission Date: 20220303
  Serious: No
  Sender: FDA-Public Use
  Company Number: US-ROCHE-2978287

PATIENT
  Sex: Female

DRUGS (1)
  1. OCREVUS [Suspect]
     Active Substance: OCRELIZUMAB
     Indication: Relapsing multiple sclerosis
     Dosage: 300MG INFUSED DAY ONE 300MG INFUSED DAY 15; ANTICIPATED DATE OF NEXT TREATMENT: 9/20/2020
     Route: 065

REACTIONS (1)
  - COVID-19 [Unknown]
